FAERS Safety Report 15428300 (Version 1)
Quarter: 2018Q3

REPORT INFORMATION
  Report Type: Other
  Country: ES (occurrence: ES)
  Receive Date: 20180926
  Receipt Date: 20180926
  Transmission Date: 20181010
  Serious: Yes (Life-Threatening, Hospitalization, Other)
  Sender: FDA-Public Use
  Company Number: ES-APOTEX-2018AP021258

PATIENT
  Age: 30 Year
  Sex: Female

DRUGS (6)
  1. QUETIAPINA                         /01270901/ [Concomitant]
     Active Substance: QUETIAPINE
     Indication: PRODUCT USED FOR UNKNOWN INDICATION
     Dosage: UNK, Q.H.S. (0?0?1)
     Route: 048
     Dates: start: 20170507
  2. OMEPRAZOLE. [Suspect]
     Active Substance: OMEPRAZOLE
     Indication: SUICIDE ATTEMPT
     Dosage: UNK, 20 CAPSULES
     Route: 048
     Dates: start: 20170507, end: 20170507
  3. TOPAMAX [Interacting]
     Active Substance: TOPIRAMATE
     Indication: SUICIDE ATTEMPT
     Dosage: UNK (6 BLISTER)
     Route: 048
     Dates: start: 20170507, end: 20170507
  4. BRINTELLIX [Concomitant]
     Active Substance: VORTIOXETINE HYDROBROMIDE
     Indication: PRODUCT USED FOR UNKNOWN INDICATION
     Dosage: UNK, Q.AM (1?0?0)
     Route: 048
     Dates: start: 20160312, end: 20170507
  5. LYRICA [Interacting]
     Active Substance: PREGABALIN
     Indication: SUICIDE ATTEMPT
     Dosage: 5 BLISTER
     Route: 048
     Dates: start: 20170507, end: 20170507
  6. TRANXILIUM [Interacting]
     Active Substance: CLORAZEPATE DIPOTASSIUM
     Indication: SUICIDE ATTEMPT
     Dosage: UNK (2 BLISTER)
     Route: 048
     Dates: start: 20170507, end: 20170507

REACTIONS (4)
  - Respiratory failure [Recovered/Resolved]
  - Somnolence [Recovered/Resolved]
  - Metabolic acidosis [Recovered/Resolved]
  - Pancreatitis [Recovered/Resolved]

NARRATIVE: CASE EVENT DATE: 20170507
